FAERS Safety Report 6029931-6 (Version None)
Quarter: 2009Q1

REPORT INFORMATION
  Report Type: 
  Country: None (occurrence: None)
  Receive Date: 20090105
  Receipt Date: 20090105
  Transmission Date: 20090719
  Serious: Yes (Other)
  Sender: FDA-Public Use
  Company Number: None

PATIENT
  Age: 37 Year
  Sex: Female
  Weight: 90.7194 kg

DRUGS (1)
  1. CYMBALTA [Suspect]
     Indication: ANTIDEPRESSANT THERAPY
     Dosage: 60 MG ONCE DAILY PO
     Route: 048
     Dates: start: 20081101, end: 20081231

REACTIONS (11)
  - ANOREXIA [None]
  - ANXIETY [None]
  - HYPERACUSIS [None]
  - IRRITABILITY [None]
  - MALAISE [None]
  - MYALGIA [None]
  - NAUSEA [None]
  - PALPITATIONS [None]
  - PARAESTHESIA [None]
  - PHOTOPHOBIA [None]
  - WITHDRAWAL SYNDROME [None]
